FAERS Safety Report 10032783 (Version 5)
Quarter: 2016Q1

REPORT INFORMATION
  Report Type: Spontaneous
  Country: US (occurrence: US)
  Receive Date: 20140324
  Receipt Date: 20160328
  Transmission Date: 20160525
  Serious: Yes (Hospitalization, Other)
  Sender: FDA-Public Use
  Company Number: US-DSJP-DSU-2014-101358

PATIENT

DRUGS (4)
  1. BENICAR [Suspect]
     Active Substance: OLMESARTAN MEDOXOMIL
     Indication: HYPERTENSION
     Dosage: 40 MG, QD
     Route: 048
  2. PRILOSEC [Concomitant]
     Active Substance: OMEPRAZOLE MAGNESIUM
     Indication: PRODUCT USED FOR UNKNOWN INDICATION
     Dosage: 40 MG, QD
     Route: 048
  3. BENICAR [Suspect]
     Active Substance: OLMESARTAN MEDOXOMIL
     Dosage: 40 MG, QD
     Route: 048
     Dates: end: 2010
  4. BENICAR HCT [Suspect]
     Active Substance: HYDROCHLOROTHIAZIDE\OLMESARTAN MEDOXOMIL
     Indication: HYPERTENSION
     Dosage: 40 MG, UNK
     Dates: start: 20100618, end: 20130620

REACTIONS (17)
  - Constipation [Unknown]
  - Intussusception [Unknown]
  - Dizziness [Not Recovered/Not Resolved]
  - Barrett^s oesophagus [Unknown]
  - Hiatus hernia [Unknown]
  - Hepatic cyst [Unknown]
  - Tropical sprue [Unknown]
  - Haemorrhoidal haemorrhage [Not Recovered/Not Resolved]
  - Sepsis [Unknown]
  - Malabsorption [Not Recovered/Not Resolved]
  - Diverticulum intestinal [Unknown]
  - HLA marker study positive [Unknown]
  - Pneumonia [Unknown]
  - Rib fracture [Unknown]
  - Renal colic [Unknown]
  - Gastrooesophageal reflux disease [Unknown]
  - Reflux gastritis [Unknown]

NARRATIVE: CASE EVENT DATE: 201008
